FAERS Safety Report 5824362-3 (Version None)
Quarter: 2008Q3

REPORT INFORMATION
  Report Type: 
  Country: None (occurrence: None)
  Receive Date: 20080728
  Receipt Date: 20080206
  Transmission Date: 20090109
  Serious: No
  Sender: FDA-Public Use
  Company Number: US-BAYER-200810630BCC

PATIENT
  Sex: Female

DRUGS (7)
  1. ALEVE [Suspect]
     Indication: ANALGESIA
     Dosage: TOTAL DAILY DOSE: 220 MG  UNIT DOSE: 220 MG
     Route: 048
  2. COZAAR [Concomitant]
  3. NEXIUM [Concomitant]
  4. PAXIL [Concomitant]
  5. ALLEGRA [Concomitant]
  6. FLONASE [Concomitant]
  7. ASPIRIN [Concomitant]
     Indication: CARDIAC DISORDER
     Route: 048
     Dates: start: 20080116

REACTIONS (1)
  - BLOOD PRESSURE INCREASED [None]
